FAERS Safety Report 6508866-6 (Version None)
Quarter: 2009Q4

REPORT INFORMATION
  Report Type: 
  Country: None (occurrence: None)
  Receive Date: 20091221
  Receipt Date: 20090825
  Transmission Date: 20100525
  Serious: No
  Sender: FDA-Public Use
  Company Number: US-ASTRAZENECA-2009SE09743

PATIENT
  Sex: Female

DRUGS (4)
  1. CRESTOR [Suspect]
     Route: 048
  2. CRESTOR [Suspect]
     Route: 048
  3. LIPITOR [Suspect]
     Route: 048
  4. ZOCOR [Suspect]
     Route: 048

REACTIONS (3)
  - FATIGUE [None]
  - MUSCLE SPASMS [None]
  - MYALGIA [None]
